FAERS Safety Report 19477745 (Version 1)
Quarter: 2021Q2

REPORT INFORMATION
  Report Type: Spontaneous
  Country: US (occurrence: US)
  Receive Date: 20210630
  Receipt Date: 20210630
  Transmission Date: 20210717
  Serious: No
  Sender: FDA-Public Use
  Company Number: US-KRAMERLABS-2020-US-021824

PATIENT
  Age: 38 Year
  Sex: Female
  Weight: 51.71 kg

DRUGS (1)
  1. NIZORAL A?D [Suspect]
     Active Substance: KETOCONAZOLE
     Indication: PRODUCT USED FOR UNKNOWN INDICATION
     Dosage: 1 APPLICATION
     Route: 061
     Dates: start: 20201023, end: 20201023

REACTIONS (4)
  - Skin exfoliation [Recovering/Resolving]
  - Feeling hot [Recovering/Resolving]
  - Dry skin [Recovering/Resolving]
  - Erythema [Recovering/Resolving]

NARRATIVE: CASE EVENT DATE: 20201023
